FAERS Safety Report 5634140-6 (Version None)
Quarter: 2008Q1

REPORT INFORMATION
  Report Type: 
  Country: None (occurrence: None)
  Receive Date: 20080221
  Receipt Date: 20080221
  Transmission Date: 20080703
  Serious: Yes (Death, Hospitalization)
  Sender: FDA-Public Use
  Company Number: None

PATIENT
  Age: 17 Month
  Sex: Male
  Weight: 8.6 kg

DRUGS (3)
  1. STAVUDINE [Suspect]
     Indication: HIV INFECTION
     Dosage: 30 MG BD PO
     Route: 048
     Dates: start: 20071107, end: 20080111
  2. LAMIVUDINE [Suspect]
     Indication: HIV INFECTION
     Dosage: 60 MG BD PO
     Route: 048
     Dates: start: 20070516, end: 20080111
  3. NEVIRAPINE [Suspect]
     Indication: HIV INFECTION
     Dosage: 180 MG BD PO
     Route: 048
     Dates: start: 20070516, end: 20080111

REACTIONS (34)
  - ABNORMAL FAECES [None]
  - AMOEBIASIS [None]
  - ANAEMIA [None]
  - BLOOD ALBUMIN DECREASED [None]
  - BLOOD CALCIUM DECREASED [None]
  - BLOOD CHLORIDE INCREASED [None]
  - BLOOD MAGNESIUM DECREASED [None]
  - BLOOD SODIUM INCREASED [None]
  - BLOOD UREA DECREASED [None]
  - CARDIAC FAILURE [None]
  - CONVULSION [None]
  - CRYPTOSPORIDIOSIS INFECTION [None]
  - DEHYDRATION [None]
  - DIARRHOEA [None]
  - EYE ROLLING [None]
  - GENERAL PHYSICAL HEALTH DETERIORATION [None]
  - HEPATOMEGALY [None]
  - HYPOKALAEMIA [None]
  - HYPOTONIA [None]
  - IRRITABILITY [None]
  - KERNIG'S SIGN [None]
  - KWASHIORKOR [None]
  - LIVER TENDERNESS [None]
  - MUSCULOSKELETAL STIFFNESS [None]
  - NEUTROPENIA [None]
  - OEDEMA PERIPHERAL [None]
  - ORAL CANDIDIASIS [None]
  - PANCYTOPENIA [None]
  - PERIORBITAL OEDEMA [None]
  - PROTEIN TOTAL DECREASED [None]
  - SEPSIS [None]
  - SOMNOLENCE [None]
  - TACHYCARDIA [None]
  - THROMBOCYTOPENIA [None]
